FAERS Safety Report 6746990-3 (Version None)
Quarter: 2010Q2

REPORT INFORMATION
  Report Type: 
  Country: None (occurrence: None)
  Receive Date: 20100528
  Receipt Date: 20100519
  Transmission Date: 20101027
  Serious: Yes (Hospitalization)
  Sender: FDA-Public Use
  Company Number: CA-JNJFOC-20100508906

PATIENT
  Sex: Female
  Weight: 46.3 kg

DRUGS (3)
  1. REMICADE [Suspect]
     Indication: COLITIS ULCERATIVE
     Dosage: 1 DOSE RECEIVED, LOADING DOSES
     Route: 042
  2. ENTOCORT EC [Concomitant]
  3. IMURAN [Concomitant]

REACTIONS (5)
  - CHILLS [None]
  - CYSTITIS [None]
  - DEHYDRATION [None]
  - HEART RATE INCREASED [None]
  - PYREXIA [None]
